FAERS Safety Report 23063157 (Version 2)
Quarter: 2023Q4

REPORT INFORMATION
  Report Type: Report from Study
  Country: US (occurrence: US)
  Receive Date: 20231013
  Receipt Date: 20231107
  Transmission Date: 20240110
  Serious: Yes (Hospitalization)
  Sender: FDA-Public Use
  Company Number: US-SA-2023SA308474

PATIENT
  Age: 44 Year
  Sex: Male
  Weight: 82 kg

DRUGS (23)
  1. OXALIPLATIN [Suspect]
     Active Substance: OXALIPLATIN
     Indication: Colorectal cancer
     Dosage: 185 MG, QOW
     Route: 041
     Dates: start: 20220302, end: 20220302
  2. OXALIPLATIN [Suspect]
     Active Substance: OXALIPLATIN
     Dosage: 185 MG, QOW
     Route: 041
     Dates: start: 20220317, end: 20220317
  3. OXALIPLATIN [Suspect]
     Active Substance: OXALIPLATIN
     Dosage: 185 MG, QOW
     Route: 041
     Dates: start: 20220330, end: 20220330
  4. OXALIPLATIN [Suspect]
     Active Substance: OXALIPLATIN
     Dosage: 140 MG, QOW
     Route: 041
     Dates: start: 20220419, end: 20220419
  5. OXALIPLATIN [Suspect]
     Active Substance: OXALIPLATIN
     Dosage: 140 MG, QOW
     Route: 041
     Dates: start: 20220503, end: 20220503
  6. OXALIPLATIN [Suspect]
     Active Substance: OXALIPLATIN
     Dosage: 140 MG, QOW
     Route: 041
     Dates: start: 20220517, end: 20220517
  7. ETRUMADENANT [Suspect]
     Active Substance: ETRUMADENANT
     Indication: Colorectal cancer
     Dosage: 150 MG
     Route: 048
     Dates: start: 20220303
  8. ZIMBERELIMAB [Suspect]
     Active Substance: ZIMBERELIMAB
     Indication: Colorectal cancer
     Dosage: 240 MG
     Route: 041
     Dates: start: 20220302
  9. FLUOROURACIL [Suspect]
     Active Substance: FLUOROURACIL
     Indication: Colorectal cancer
     Dosage: 875 MG
     Route: 040
     Dates: start: 20220302
  10. LEUCOVORIN CALCIUM [Suspect]
     Active Substance: LEUCOVORIN CALCIUM
     Dosage: 400 MG
     Route: 041
     Dates: start: 20220302
  11. BEVACIZUMAB [Suspect]
     Active Substance: BEVACIZUMAB
     Indication: Colorectal cancer
     Dosage: 400 MG
     Route: 041
     Dates: start: 20220302
  12. METAMUCIL THERAPY FOR REGULARITY [Concomitant]
     Active Substance: PSYLLIUM HUSK
     Dosage: UNK
     Dates: start: 20211020
  13. ULTRAM [Concomitant]
     Active Substance: TRAMADOL HYDROCHLORIDE
     Dosage: UNK
     Dates: start: 20190813
  14. GABAPENTIN [Concomitant]
     Active Substance: GABAPENTIN
     Indication: Prophylaxis
     Dosage: UNK
     Dates: start: 20190819
  15. PROCHLORPERAZINE EDISYLATE [Concomitant]
     Active Substance: PROCHLORPERAZINE EDISYLATE
     Dosage: UNK
     Dates: start: 20190913
  16. CETIRIZINE HYDROCHLORIDE [Concomitant]
     Active Substance: CETIRIZINE HYDROCHLORIDE
     Dosage: UNK
     Dates: start: 20200508
  17. MONTELUKAST [Concomitant]
     Active Substance: MONTELUKAST SODIUM
     Indication: Prophylaxis
     Dosage: UNK
     Dates: start: 20200509
  18. ZOFRAN [Concomitant]
     Active Substance: ONDANSETRON HYDROCHLORIDE
     Dosage: UNK
     Dates: start: 20201217
  19. FLUTICASONE PROPIONATE [Concomitant]
     Active Substance: FLUTICASONE PROPIONATE
     Dosage: UNK
     Dates: start: 20210104
  20. MULTIVITAMIN IRON [Concomitant]
     Indication: Prophylaxis
     Dosage: UNK
     Dates: start: 20210115
  21. RESTORIL [Concomitant]
     Active Substance: TEMAZEPAM
     Dosage: UNK
     Dates: start: 20210201
  22. PREDNISONE [Concomitant]
     Active Substance: PREDNISONE
     Dosage: UNK
     Dates: start: 20220412, end: 20220503
  23. SENNA [Concomitant]
     Active Substance: SENNA LEAF\SENNOSIDES\SENNOSIDES A AND B
     Dosage: UNK
     Dates: start: 20220517

REACTIONS (1)
  - Pyrexia [Recovered/Resolved]

NARRATIVE: CASE EVENT DATE: 20220517
